FAERS Safety Report 9175155 (Version 2)
Quarter: 2013Q4

REPORT INFORMATION
  Report Type: Spontaneous
  Country: US (occurrence: US)
  Receive Date: 20130320
  Receipt Date: 20131209
  Transmission Date: 20140711
  Serious: Yes (Other)
  Sender: FDA-Public Use
  Company Number: US-BAYER-2013-033641

PATIENT
  Age: 30 Year
  Sex: Female

DRUGS (9)
  1. OCELLA [Suspect]
  2. YAZ [Suspect]
  3. YASMIN [Suspect]
  4. PENTA-VITE CHEWABLE MULTIVITAMINS FOR KIDS [Concomitant]
  5. IRON [Concomitant]
  6. VITAMIN B12 NOS [Concomitant]
  7. PEPCID [Concomitant]
  8. PREVACID [Concomitant]
  9. ROXICET [Concomitant]

REACTIONS (4)
  - Cholecystectomy [None]
  - Cholecystitis chronic [None]
  - Injury [None]
  - Emotional distress [None]
